FAERS Safety Report 18067295 (Version 2)
Quarter: 2020Q3

REPORT INFORMATION
  Report Type: Spontaneous
  Country: IL (occurrence: IL)
  Receive Date: 20200724
  Receipt Date: 20200805
  Transmission Date: 20201103
  Serious: Yes (Hospitalization, Other)
  Sender: FDA-Public Use
  Company Number: IL-SA-2020SA187343

PATIENT

DRUGS (3)
  1. FEXOFENADINE [Suspect]
     Active Substance: FEXOFENADINE HYDROCHLORIDE
     Indication: EYE ALLERGY
     Dosage: 180 MG, QD (FOR 3 CONSECUTIVE WEEKS, EXCEPT A BREAK FOR 1 OR 2 DAYS)
     Route: 065
  2. FEXOFENADINE [Suspect]
     Active Substance: FEXOFENADINE HYDROCHLORIDE
     Indication: HYPERSENSITIVITY
  3. FEXOFENADINE [Suspect]
     Active Substance: FEXOFENADINE HYDROCHLORIDE
     Indication: EYE INFLAMMATION

REACTIONS (5)
  - Occult blood [Unknown]
  - Haemoglobin decreased [Unknown]
  - Malaise [Unknown]
  - Gastrointestinal haemorrhage [Unknown]
  - Haemoglobin decreased [Recovered/Resolved]
